FAERS Safety Report 7862086-1 (Version None)
Quarter: 2011Q4

REPORT INFORMATION
  Report Type: 
  Country: None (occurrence: None)
  Receive Date: 20111026
  Receipt Date: 20111011
  Transmission Date: 20120403
  Serious: Yes (Hospitalization, Other)
  Sender: FDA-Public Use
  Company Number: FK201102216

PATIENT
  Age: 31 Year
  Sex: Female

DRUGS (1)
  1. CHORIONIC GONADOTROPIN [Suspect]
     Indication: OVULATION INDUCTION
     Dosage: INTRAVENOUS (NOT OTHERWISE SPECIFIED)
     Route: 042

REACTIONS (5)
  - TACHYCARDIA [None]
  - ARTERIAL HAEMORRHAGE [None]
  - OVARIAN TORSION [None]
  - OVARIAN RUPTURE [None]
  - BLOOD PRESSURE DECREASED [None]
